FAERS Safety Report 17634121 (Version 2)
Quarter: 2020Q2

REPORT INFORMATION
  Report Type: Spontaneous
  Country: CA (occurrence: CA)
  Receive Date: 20200406
  Receipt Date: 20200609
  Transmission Date: 20200713
  Serious: Yes (Other)
  Sender: FDA-Public Use
  Company Number: CA-PFIZER INC-2019082183

PATIENT
  Age: 39 Year
  Sex: Female
  Weight: 135 kg

DRUGS (6)
  1. SALOFALK [Concomitant]
     Dosage: UNK
     Dates: start: 2019, end: 201902
  2. XELJANZ [Suspect]
     Active Substance: TOFACITINIB CITRATE
     Dosage: 10 MG, 1X/DAY
     Route: 048
     Dates: start: 20190720, end: 20190827
  3. SALOFALK [Concomitant]
     Dosage: 2 G, DAILY
     Route: 048
     Dates: start: 2019
  4. XELJANZ [Suspect]
     Active Substance: TOFACITINIB CITRATE
     Indication: COLITIS ULCERATIVE
     Dosage: 10 MG, 2X/DAY
     Route: 048
     Dates: start: 20190215, end: 20190719
  5. XELJANZ [Suspect]
     Active Substance: TOFACITINIB CITRATE
     Dosage: 5 MG, 2X/DAY
     Route: 048
     Dates: start: 20190827, end: 20200312
  6. SALOFALK [Concomitant]
     Dosage: 4 DF, UNK (IN THE MORNING)
     Dates: start: 2019, end: 2019

REACTIONS (14)
  - Decreased appetite [Recovered/Resolved]
  - Condition aggravated [Not Recovered/Not Resolved]
  - Vomiting [Recovered/Resolved]
  - Malaise [Unknown]
  - Weight decreased [Unknown]
  - Faecal calprotectin increased [Unknown]
  - Product dose omission [Unknown]
  - Constipation [Unknown]
  - Headache [Recovered/Resolved]
  - Abdominal distension [Unknown]
  - Gastroenteritis viral [Unknown]
  - Haematochezia [Unknown]
  - Nausea [Recovered/Resolved]
  - Bowel movement irregularity [Unknown]

NARRATIVE: CASE EVENT DATE: 2019
